FAERS Safety Report 4455946-5 (Version None)
Quarter: 2004Q3

REPORT INFORMATION
  Report Type: 
  Country: None (occurrence: None)
  Receive Date: 20040830
  Receipt Date: 20040421
  Transmission Date: 20050211
  Serious: No
  Sender: FDA-Public Use
  Company Number: 206091

PATIENT
  Sex: Female

DRUGS (1)
  1. XOLAIR [Suspect]
     Indication: ASTHMA
     Dosage: 450 MG, Q2W, SUBCUTANEOUS
     Route: 058

REACTIONS (3)
  - ARTHRALGIA [None]
  - MALAISE [None]
  - MYALGIA [None]
